FAERS Safety Report 8479175-3 (Version None)
Quarter: 2012Q2

REPORT INFORMATION
  Report Type: 
  Country: None (occurrence: None)
  Receive Date: 20120402
  Receipt Date: 20111105
  Transmission Date: 20120825
  Serious: Yes (Hospitalization)
  Sender: FDA-Public Use
  Company Number: A-US2011-56719

PATIENT
  Age: 44 Year
  Sex: Male

DRUGS (4)
  1. COUMADIN [Concomitant]
  2. OXYGEN (OXYGEN) [Concomitant]
  3. REVATIO [Concomitant]
  4. TRACLEER [Suspect]
     Indication: PULMONARY ARTERIAL HYPERTENSION
     Dosage: UNK, ORAL
     Route: 048
     Dates: start: 20080501

REACTIONS (1)
  - CARDIAC FAILURE [None]
